FAERS Safety Report 10884060 (Version 3)
Quarter: 2015Q4

REPORT INFORMATION
  Report Type: Report from Study
  Country: JP (occurrence: JP)
  Receive Date: 20150304
  Receipt Date: 20151102
  Transmission Date: 20160304
  Serious: Yes (Other)
  Sender: FDA-Public Use
  Company Number: JP-PFIZER INC-2015072533

PATIENT
  Age: 63 Year
  Sex: Male

DRUGS (4)
  1. LEXIN [Concomitant]
     Active Substance: CEPHALEXIN
     Indication: PAIN
     Dosage: 100 MG, 1X/DAY
     Route: 048
     Dates: end: 20110303
  2. PREGABALIN. [Suspect]
     Active Substance: PREGABALIN
     Indication: POST HERPETIC NEURALGIA
     Dosage: 50 MG, 2X/DAY (AFTER MEAL IN THE MORNING AND BEFORE BEDTIME)
     Route: 048
     Dates: start: 20110302, end: 20110313
  3. VALTREX [Suspect]
     Active Substance: VALACYCLOVIR HYDROCHLORIDE
     Indication: IRITIS
     Dosage: 1000 MG, 3X/DAY
     Route: 048
     Dates: start: 20110310, end: 20110315
  4. METHYCOBAL [Concomitant]
     Active Substance: METHYLCOBALAMIN
     Indication: PAIN
     Dosage: 500 ?G, 3X/DAY
     Route: 048
     Dates: start: 20110210

REACTIONS (1)
  - Fall [Recovering/Resolving]

NARRATIVE: CASE EVENT DATE: 20110313
